FAERS Safety Report 6329079-7 (Version None)
Quarter: 2009Q3

REPORT INFORMATION
  Report Type: 
  Country: None (occurrence: None)
  Receive Date: 20090826
  Receipt Date: 20090818
  Transmission Date: 20100115
  Serious: Yes (Hospitalization)
  Sender: FDA-Public Use
  Company Number: PHHO2009JP10286

PATIENT
  Sex: Male
  Weight: 167 kg

DRUGS (7)
  1. MYCOPHENOLATE MOFETIL [Suspect]
     Indication: RENAL TRANSPLANT
     Dosage: 2 G/DAY
     Route: 048
     Dates: start: 20090101
  2. MYCOPHENOLATE MOFETIL [Suspect]
     Dosage: 500 MG/DAY
     Route: 048
     Dates: start: 20090415, end: 20090818
  3. NEORAL [Suspect]
     Indication: RENAL TRANSPLANT
     Dosage: 150 MG/DAY
     Route: 048
     Dates: start: 20090513, end: 20090818
  4. MEDROL [Suspect]
     Indication: RENAL TRANSPLANT
     Dosage: 4 MG/DAY
     Route: 048
     Dates: start: 20090520, end: 20090818
  5. TAKEPRON [Concomitant]
     Indication: GASTRITIS PROPHYLAXIS
     Dosage: 12 MG, UNK
     Route: 048
     Dates: start: 20090325, end: 20090818
  6. TAKEPRON [Concomitant]
     Dosage: 30 MG, UNK
     Route: 041
     Dates: start: 20090818
  7. MAALOX [Concomitant]
     Indication: GASTRITIS PROPHYLAXIS
     Dosage: 1.2 G, UNK
     Route: 048
     Dates: start: 20090323

REACTIONS (5)
  - ABDOMINAL PAIN [None]
  - BILIARY DILATATION [None]
  - CHILLS [None]
  - CHOLECYSTITIS ACUTE [None]
  - PANCREATITIS ACUTE [None]
